FAERS Safety Report 10612529 (Version 3)
Quarter: 2015Q1

REPORT INFORMATION
  Report Type: Spontaneous
  Country: US (occurrence: US)
  Receive Date: 20141127
  Receipt Date: 20150129
  Transmission Date: 20150720
  Serious: No
  Sender: FDA-Public Use
  Company Number: US-BIOGENIDEC-2014BI122799

PATIENT
  Age: 65 Year
  Sex: Female

DRUGS (17)
  1. BACLOFEN. [Concomitant]
     Active Substance: BACLOFEN
  2. BONIVA [Concomitant]
     Active Substance: IBANDRONATE SODIUM
  3. CENTRUM [Concomitant]
     Active Substance: VITAMINS
  4. LISINOPRIL-HYDROCHLOROTHIAZIDE [Concomitant]
     Active Substance: HYDROCHLOROTHIAZIDE\LISINOPRIL
  5. OSEAL 500/200 D-3 [Concomitant]
  6. OMEGA 3 [Concomitant]
     Active Substance: OMEGA-3 FATTY ACIDS
  7. VITAMIN B COMPLEX-C [Concomitant]
  8. EVISTA [Concomitant]
     Active Substance: RALOXIFENE HYDROCHLORIDE
  9. VITAMIN E COMPLETE [Concomitant]
  10. ZOCOR [Concomitant]
     Active Substance: SIMVASTATIN
  11. TECFIDERA [Suspect]
     Active Substance: DIMETHYL FUMARATE
     Indication: MULTIPLE SCLEROSIS
     Route: 048
  12. ASPIRIN LOW DOSE [Concomitant]
     Active Substance: ASPIRIN
  13. TECFIDERA [Suspect]
     Active Substance: DIMETHYL FUMARATE
     Indication: MULTIPLE SCLEROSIS
     Route: 048
     Dates: start: 20140910
  14. TECFIDERA [Suspect]
     Active Substance: DIMETHYL FUMARATE
     Indication: MULTIPLE SCLEROSIS
     Route: 048
     Dates: start: 20140917
  15. DITROPAN XL [Concomitant]
     Active Substance: OXYBUTYNIN CHLORIDE
  16. ONE DAILY FOR WOMEN [Concomitant]
  17. VITAMIN D [Concomitant]
     Active Substance: CHOLECALCIFEROL

REACTIONS (1)
  - Dizziness [Unknown]
